FAERS Safety Report 13534993 (Version 1)
Quarter: 2017Q2

REPORT INFORMATION
  Report Type: Spontaneous
  Country: US (occurrence: US)
  Receive Date: 20170511
  Receipt Date: 20170511
  Transmission Date: 20170830
  Serious: Yes (Hospitalization, Other)
  Sender: FDA-Public Use
  Company Number: US-DRREDDYS-USA/USA/17/0090581

PATIENT
  Age: 13 Year
  Sex: Male

DRUGS (9)
  1. TACROLIMUS. [Suspect]
     Active Substance: TACROLIMUS
     Indication: PROPHYLAXIS AGAINST GRAFT VERSUS HOST DISEASE
     Route: 065
  2. AZACITIDINE. [Suspect]
     Active Substance: AZACITIDINE
     Indication: ACUTE MYELOID LEUKAEMIA
  3. CYCLOPHOSPHAMIDE. [Suspect]
     Active Substance: CYCLOPHOSPHAMIDE
     Indication: UNRELATED DONOR BONE MARROW TRANSPLANTATION THERAPY
     Route: 065
  4. MYCOPHENOLATE [Suspect]
     Active Substance: MYCOPHENOLIC ACID
     Indication: PROPHYLAXIS AGAINST GRAFT VERSUS HOST DISEASE
     Route: 065
  5. BUSULFAN. [Suspect]
     Active Substance: BUSULFAN
     Indication: UNRELATED DONOR BONE MARROW TRANSPLANTATION THERAPY
     Dosage: EVERY 12 HOURS FOR 2 DAYS
     Route: 042
  6. CYTARABINE. [Concomitant]
     Active Substance: CYTARABINE
     Indication: ACUTE MYELOID LEUKAEMIA
  7. FLUDARABINE [Suspect]
     Active Substance: FLUDARABINE PHOSPHATE
     Indication: UNRELATED DONOR BONE MARROW TRANSPLANTATION THERAPY
     Route: 042
  8. CYTARABINE. [Concomitant]
     Active Substance: CYTARABINE
     Indication: CONGENITAL APLASTIC ANAEMIA
     Route: 042
  9. AZACITIDINE. [Suspect]
     Active Substance: AZACITIDINE
     Indication: CONGENITAL APLASTIC ANAEMIA
     Dosage: EVERY 21 DAYS FOR TWO CYCLES
     Route: 042

REACTIONS (9)
  - Mucosal inflammation [Recovered/Resolved]
  - Respiratory distress [Recovered/Resolved]
  - Febrile neutropenia [Recovered/Resolved]
  - Acute kidney injury [Recovered/Resolved]
  - Leukaemia recurrent [Unknown]
  - Acute graft versus host disease [Unknown]
  - Pain in extremity [Unknown]
  - Anaphylactic reaction [Recovered/Resolved]
  - Venoocclusive liver disease [Recovered/Resolved]
